FAERS Safety Report 6102675-8 (Version None)
Quarter: 2009Q1

REPORT INFORMATION
  Report Type: 
  Country: None (occurrence: None)
  Receive Date: 20090304
  Receipt Date: 20081219
  Transmission Date: 20090719
  Serious: No
  Sender: FDA-Public Use
  Company Number: A0761092A

PATIENT
  Age: 69 Year
  Sex: Male

DRUGS (4)
  1. ROPINIROLE [Suspect]
     Indication: PARKINSON'S DISEASE
     Dosage: 1MG THREE TIMES PER DAY
     Route: 048
     Dates: start: 20081001, end: 20081217
  2. PRILOSEC [Concomitant]
  3. CRESTOR [Concomitant]
  4. NEXIUM [Concomitant]

REACTIONS (1)
  - NAUSEA [None]
